FAERS Safety Report 10383900 (Version 1)
Quarter: 2014Q3

REPORT INFORMATION
  Report Type: Spontaneous
  Country: IT (occurrence: IT)
  Receive Date: 20140814
  Receipt Date: 20140814
  Transmission Date: 20150326
  Serious: Yes (Other)
  Sender: FDA-Public Use
  Company Number: IT-JNJFOC-20140805232

PATIENT
  Age: 68 Year
  Sex: Male

DRUGS (2)
  1. MYLICONGAS [Suspect]
     Active Substance: DIMETHICONE
     Indication: AEROPHAGIA
     Route: 048
     Dates: start: 20140708, end: 20140708
  2. MYLICONGAS [Suspect]
     Active Substance: DIMETHICONE
     Indication: FLATULENCE
     Route: 048
     Dates: start: 20140708, end: 20140708

REACTIONS (2)
  - Pruritus generalised [Recovering/Resolving]
  - Generalised erythema [Recovering/Resolving]

NARRATIVE: CASE EVENT DATE: 20140708
